FAERS Safety Report 21651018 (Version 1)
Quarter: 2022Q4

REPORT INFORMATION
  Report Type: Spontaneous
  Country: GB (occurrence: GB)
  Receive Date: 20221128
  Receipt Date: 20221128
  Transmission Date: 20230112
  Serious: Yes (Hospitalization, Other)
  Sender: FDA-Public Use
  Company Number: GB-MYLANLABS-2022M1130752

PATIENT
  Sex: Female

DRUGS (2)
  1. CLOZARIL [Suspect]
     Active Substance: CLOZAPINE
     Indication: Schizophrenia
     Dosage: 200 MILLIGRAM, QD
     Route: 048
     Dates: start: 20101116
  2. CLOZARIL [Suspect]
     Active Substance: CLOZAPINE
     Dosage: 15 MILLIGRAM, QD
     Route: 048

REACTIONS (2)
  - Mental impairment [Unknown]
  - Incorrect dose administered [Unknown]
